FAERS Safety Report 18303648 (Version 1)
Quarter: 2020Q3

REPORT INFORMATION
  Report Type: Spontaneous
  Country: US (occurrence: US)
  Receive Date: 20200923
  Receipt Date: 20200923
  Transmission Date: 20201103
  Serious: Yes (Other)
  Sender: FDA-Public Use
  Company Number: US-B.I. PHARMACEUTICALS,INC./RIDGEFIELD-2020-BI-048183

PATIENT
  Age: 86 Year
  Sex: Female

DRUGS (1)
  1. COMBIVENT [Suspect]
     Active Substance: ALBUTEROL SULFATE\IPRATROPIUM BROMIDE
     Indication: PRODUCT USED FOR UNKNOWN INDICATION
     Dosage: 1 SPRAY 6 TIMES PER DAY
     Dates: start: 2012

REACTIONS (4)
  - Hypoacusis [Not Recovered/Not Resolved]
  - Blindness [Unknown]
  - Hypervolaemia [Unknown]
  - Cataract [Unknown]
